FAERS Safety Report 14137878 (Version 7)
Quarter: 2018Q1

REPORT INFORMATION
  Report Type: Spontaneous
  Country: PL (occurrence: PL)
  Receive Date: 20171027
  Receipt Date: 20180122
  Transmission Date: 20180508
  Serious: Yes (Life-Threatening, Hospitalization)
  Sender: FDA-Public Use
  Company Number: PL-CELGENEUS-POL-20171007620

PATIENT
  Age: 76 Year
  Sex: Female
  Weight: 49.9 kg

DRUGS (24)
  1. VENETOCLAX. [Concomitant]
     Active Substance: VENETOCLAX
     Route: 048
     Dates: start: 20171228
  2. BISEPTOL [Concomitant]
     Active Substance: SULFAMETHOXAZOLE\TRIMETHOPRIM
     Indication: INFECTION PROPHYLAXIS
     Dosage: 480 MILLIGRAM
     Route: 048
     Dates: start: 201709
  3. ONDANSETRON [Concomitant]
     Active Substance: ONDANSETRON
     Indication: PROPHYLAXIS OF NAUSEA AND VOMITING
     Route: 065
     Dates: start: 20170916, end: 20170927
  4. DEXAMETHASONE. [Concomitant]
     Active Substance: DEXAMETHASONE
     Indication: NAUSEA
     Route: 065
     Dates: start: 20171003, end: 20171006
  5. VENETOCLAX. [Concomitant]
     Active Substance: VENETOCLAX
     Route: 048
     Dates: start: 20170927, end: 20170927
  6. VENETOCLAX. [Concomitant]
     Active Substance: VENETOCLAX
     Route: 048
     Dates: start: 20170928, end: 20171123
  7. SALINE [Concomitant]
     Active Substance: SODIUM CHLORIDE
     Indication: PARENTERAL NUTRITION
     Route: 041
     Dates: start: 20171004, end: 20171015
  8. BISOCARD [Concomitant]
     Active Substance: BISOPROLOL
     Indication: ATRIAL FIBRILLATION
     Dosage: 2.5 MILLIGRAM
     Route: 048
     Dates: start: 2016
  9. FLUCONAZOL [Concomitant]
     Active Substance: FLUCONAZOLE
     Indication: INFECTION PROPHYLAXIS
     Dosage: 100 MILLIGRAM
     Route: 048
     Dates: start: 201709
  10. ONDANSETRON [Concomitant]
     Active Substance: ONDANSETRON
     Route: 065
     Dates: start: 20170925, end: 20170926
  11. RESONIUM [Concomitant]
     Active Substance: SODIUM POLYSTYRENE SULFONATE
     Indication: BLOOD POTASSIUM INCREASED
     Route: 065
     Dates: start: 20170925, end: 20170926
  12. METOCLOPRAMID [Concomitant]
     Active Substance: METOCLOPRAMIDE
     Indication: NAUSEA
     Route: 065
     Dates: start: 20171003, end: 20171006
  13. AZACITIDINE INJECTABLE [Suspect]
     Active Substance: AZACITIDINE
     Indication: ACUTE MYELOID LEUKAEMIA
     Route: 058
     Dates: start: 20170925, end: 20171112
  14. AZACITIDINE INJECTABLE [Suspect]
     Active Substance: AZACITIDINE
     Dosage: 18.75 MILLIGRAM/SQ. METER
     Route: 058
     Dates: start: 20171228
  15. VENETOCLAX. [Concomitant]
     Active Substance: VENETOCLAX
     Indication: ACUTE MYELOID LEUKAEMIA
     Route: 048
     Dates: start: 20170925, end: 20170925
  16. SALINE [Concomitant]
     Active Substance: SODIUM CHLORIDE
     Indication: PROPHYLAXIS
     Route: 041
     Dates: start: 20170920, end: 20170924
  17. SALINE [Concomitant]
     Active Substance: SODIUM CHLORIDE
     Route: 041
     Dates: start: 20170929, end: 20171003
  18. CALCIUM [Concomitant]
     Active Substance: CALCIUM
     Indication: HYPERPHOSPHATAEMIA
     Route: 065
     Dates: start: 20170925, end: 20170926
  19. MILURIT [Concomitant]
     Active Substance: ALLOPURINOL
     Indication: PROPHYLAXIS
     Route: 048
     Dates: start: 20170920, end: 20171016
  20. SALINE [Concomitant]
     Active Substance: SODIUM CHLORIDE
     Route: 041
     Dates: start: 20170927, end: 20170928
  21. CONTROLOC [Concomitant]
     Active Substance: PANTOPRAZOLE SODIUM
     Indication: ABDOMINAL PAIN
     Dosage: 20 MILLIGRAM
     Route: 048
     Dates: start: 201709
  22. FUROSEMIDE. [Concomitant]
     Active Substance: FUROSEMIDE
     Indication: BLOOD POTASSIUM INCREASED
     Route: 065
     Dates: start: 20170925, end: 20170926
  23. SALINE [Concomitant]
     Active Substance: SODIUM CHLORIDE
     Route: 041
     Dates: start: 20170925, end: 20170926
  24. NO-SPA [Concomitant]
     Active Substance: DROTAVERINE HYDROCHLORIDE
     Indication: ABDOMINAL PAIN
     Dosage: 80 MILLIGRAM
     Route: 041
     Dates: start: 20171020

REACTIONS (3)
  - Neutropenia [Recovered/Resolved]
  - Klebsiella sepsis [Recovered/Resolved]
  - Urosepsis [Recovered/Resolved]

NARRATIVE: CASE EVENT DATE: 20171018
